FAERS Safety Report 6025265-4 (Version None)
Quarter: 2008Q4

REPORT INFORMATION
  Report Type: 
  Country: None (occurrence: None)
  Receive Date: 20081231
  Receipt Date: 20081218
  Transmission Date: 20090506
  Serious: Yes (Other)
  Sender: FDA-Public Use
  Company Number: PHHY2008DE26552

PATIENT
  Sex: Female

DRUGS (2)
  1. LOCHOL [Suspect]
     Indication: HYPERCHOLESTEROLAEMIA
     Dosage: 40MG/DAY
     Route: 048
  2. BETA BLOCKING AGENTS [Concomitant]
     Indication: HYPERTENSION

REACTIONS (7)
  - ARTHROPATHY [None]
  - ARTHROSCOPY [None]
  - BONE DISORDER [None]
  - HIP ARTHROPLASTY [None]
  - MUSCLE DISORDER [None]
  - MUSCLE SPASMS [None]
  - MYALGIA [None]
